FAERS Safety Report 24126387 (Version 2)
Quarter: 2024Q3

REPORT INFORMATION
  Report Type: Spontaneous
  Country: US (occurrence: US)
  Receive Date: 20240723
  Receipt Date: 20240725
  Transmission Date: 20241017
  Serious: Yes (Hospitalization, Other)
  Sender: PFIZER
  Company Number: US-PFIZER INC-202400219780

PATIENT
  Age: 12 Year
  Sex: Male
  Weight: 29.4 kg

DRUGS (3)
  1. OXBRYTA [Suspect]
     Active Substance: VOXELOTOR
     Indication: Sickle cell disease
     Dosage: 600 MG, DAILY
     Route: 048
     Dates: start: 20240628, end: 20240708
  2. HYDROXYUREA [Concomitant]
     Active Substance: HYDROXYUREA
     Indication: Sickle cell disease
     Dosage: UNK
     Dates: start: 2015
  3. HYDROXYUREA [Concomitant]
     Active Substance: HYDROXYUREA
     Dosage: 500 MG, 2X/DAY
     Route: 048
     Dates: start: 202209

REACTIONS (17)
  - Sickle cell anaemia with crisis [Recovering/Resolving]
  - Pyrexia [Unknown]
  - Renal impairment [Unknown]
  - Acute kidney injury [Unknown]
  - Oxygen consumption increased [Unknown]
  - Anaemia [Unknown]
  - Chills [Unknown]
  - Fatigue [Unknown]
  - Hypophagia [Unknown]
  - Headache [Unknown]
  - Abdominal pain [Unknown]
  - Diarrhoea [Unknown]
  - Cough [Unknown]
  - Back pain [Unknown]
  - Nausea [Not Recovered/Not Resolved]
  - Vomiting [Not Recovered/Not Resolved]
  - Off label use [Unknown]

NARRATIVE: CASE EVENT DATE: 20240628
